FAERS Safety Report 7134886-7 (Version None)
Quarter: 2010Q4

REPORT INFORMATION
  Report Type: 
  Country: None (occurrence: None)
  Receive Date: 20101130
  Receipt Date: 20101130
  Transmission Date: 20110411
  Serious: No
  Sender: FDA-Public Use
  Company Number: None

PATIENT
  Age: 51 Year
  Sex: Female
  Weight: 159.5 kg

DRUGS (5)
  1. DAPTOMYCIN [Suspect]
     Indication: CELLULITIS
     Dosage: 700 MG EVERY 24 HOURS IV
     Route: 042
     Dates: start: 20101110, end: 20101122
  2. ZYRTEC [Concomitant]
  3. LASIX [Concomitant]
  4. PROVENTIL [Concomitant]
  5. DUONEB [Concomitant]

REACTIONS (2)
  - BACK PAIN [None]
  - MUSCULOSKELETAL PAIN [None]
